FAERS Safety Report 16786175 (Version 1)
Quarter: 2019Q3

REPORT INFORMATION
  Report Type: Spontaneous
  Country: PT (occurrence: PT)
  Receive Date: 20190909
  Receipt Date: 20190909
  Transmission Date: 20191005
  Serious: Yes (Death, Other)
  Sender: FDA-Public Use
  Company Number: PT-AXELLIA-002683

PATIENT
  Age: 10 Month
  Sex: Male

DRUGS (21)
  1. CEFOTAXIME [Suspect]
     Active Substance: CEFOTAXIME SODIUM
     Indication: DEVICE RELATED SEPSIS
     Dosage: 150 MG/KG, PER DAY
  2. AZITHROMYCIN ANHYDROUS. [Concomitant]
     Active Substance: AZITHROMYCIN ANHYDROUS
     Dosage: 20 MG/KG, ONCE WEEKLY
  3. LAMIVUDINE. [Suspect]
     Active Substance: LAMIVUDINE
     Indication: HIV INFECTION
     Dosage: 4 MG/KG, BID
  4. GANCICLOVIR. [Concomitant]
     Active Substance: GANCICLOVIR
     Indication: PRODUCT USED FOR UNKNOWN INDICATION
     Dosage: 10 MG/KG, PER DAY
  5. GENTAMICIN. [Suspect]
     Active Substance: GENTAMICIN
     Indication: DEVICE RELATED SEPSIS
     Dosage: 5 MG/KG, PER DAY
  6. ZIDOVUDINE. [Suspect]
     Active Substance: ZIDOVUDINE
     Indication: HIV INFECTION
     Dosage: 12 MG/KG, BID
  7. SULFAMETHOXAZOLE/TRIMETHOPRIM [Concomitant]
     Indication: PNEUMOCYSTIS JIROVECII PNEUMONIA
     Dosage: 15 MG/KG, PER DAY
  8. PAROMOMYCIN [Concomitant]
     Active Substance: PAROMOMYCIN
     Indication: PRODUCT USED FOR UNKNOWN INDICATION
     Dosage: 30 MG/KG, PER DAY
  9. LOPINAVIR/RITONAVIR [Suspect]
     Active Substance: LOPINAVIR\RITONAVIR
     Indication: HIV INFECTION
     Dosage: (230 MG/M2/DOSE OF LOPINAVIR 2ID)
  10. CEFTRIAXONE. [Concomitant]
     Active Substance: CEFTRIAXONE
     Indication: PNEUMOCYSTIS JIROVECII PNEUMONIA
     Dosage: 100 MG/KG, PER DAY
  11. AZITHROMYCIN ANHYDROUS. [Concomitant]
     Active Substance: AZITHROMYCIN ANHYDROUS
     Indication: PNEUMOCYSTIS JIROVECII PNEUMONIA
     Dosage: 10 MG/KG, PER DAY
  12. VANCOMYCIN [Suspect]
     Active Substance: VANCOMYCIN
     Indication: PRODUCT USED FOR UNKNOWN INDICATION
     Dosage: 40 MG/KG, PER DAY
  13. VANCOMYCIN [Suspect]
     Active Substance: VANCOMYCIN
     Indication: DEVICE RELATED SEPSIS
     Dosage: 40 MG/KG, PER DAY
  14. METHYLPREDNISOLONE. [Concomitant]
     Active Substance: METHYLPREDNISOLONE
     Dosage: 2 MG/KG, PER DAY
  15. AMPHOTERICIN B/AMPHOTERICIN B/LIPOSOME [Concomitant]
     Indication: PRODUCT USED FOR UNKNOWN INDICATION
     Dosage: 3 MG/KG, PER DAY
  16. METHYLPREDNISOLONE. [Concomitant]
     Active Substance: METHYLPREDNISOLONE
     Indication: PNEUMOCYSTIS JIROVECII PNEUMONIA
     Dosage: 2 MG/KG, PER DAY
  17. CEFOTAXIME [Suspect]
     Active Substance: CEFOTAXIME SODIUM
     Indication: PRODUCT USED FOR UNKNOWN INDICATION
     Dosage: 150 MG/KG, PER DAY
  18. MEROPENEM. [Concomitant]
     Active Substance: MEROPENEM
     Indication: PRODUCT USED FOR UNKNOWN INDICATION
     Dosage: 60 MG/KG, PER DAY
  19. VANCOMYCIN [Suspect]
     Active Substance: VANCOMYCIN
     Indication: DEVICE RELATED SEPSIS
     Dosage: 40 MG/KG, PER DAY
  20. GENTAMICIN SULPHATE [Suspect]
     Active Substance: GENTAMICIN SULFATE
     Indication: PRODUCT USED FOR UNKNOWN INDICATION
     Dosage: 5 MG/KG, PER DAY
  21. VANCOMYCIN [Suspect]
     Active Substance: VANCOMYCIN
     Indication: PNEUMOCYSTIS JIROVECII PNEUMONIA
     Dosage: 40 MG/KG, PER DAY

REACTIONS (29)
  - Vomiting [Unknown]
  - Transaminases increased [Unknown]
  - Haemophagocytic lymphohistiocytosis [Unknown]
  - Rash macular [Unknown]
  - Thrombotic microangiopathy [Unknown]
  - Reticulocytosis [Unknown]
  - Proteinuria [Unknown]
  - Pyrexia [Unknown]
  - Diarrhoea haemorrhagic [Unknown]
  - Oedema [Unknown]
  - HIV associated nephropathy [Unknown]
  - Disseminated intravascular coagulation [Fatal]
  - Haemolysis [Unknown]
  - Weight decreased [Unknown]
  - Stupor [Unknown]
  - Poor peripheral circulation [Unknown]
  - Large intestinal haemorrhage [Fatal]
  - Klebsiella infection [Unknown]
  - Red blood cell schistocytes present [Unknown]
  - Device related sepsis [Unknown]
  - Diarrhoea [Unknown]
  - Immune reconstitution inflammatory syndrome [Unknown]
  - ADAMTS13 activity decreased [Unknown]
  - Hypoalbuminaemia [Unknown]
  - Pathogen resistance [Unknown]
  - Anaemia [Unknown]
  - CD4 lymphocytes increased [Unknown]
  - General physical health deterioration [Unknown]
  - Hepatosplenomegaly [Unknown]
